FAERS Safety Report 17448278 (Version 4)
Quarter: 2020Q2

REPORT INFORMATION
  Report Type: Spontaneous
  Country: US (occurrence: US)
  Receive Date: 20200223
  Receipt Date: 20200408
  Transmission Date: 20200713
  Serious: Yes (Other)
  Sender: FDA-Public Use
  Company Number: NVSC2020US045890

PATIENT
  Sex: Female

DRUGS (3)
  1. DORZOLAMIDE HCL SANDOZ [Suspect]
     Active Substance: DORZOLAMIDE HYDROCHLORIDE
     Indication: PRODUCT USED FOR UNKNOWN INDICATION
     Dosage: 0.2 %, BID(ONE DROP IN EACH EYE TWICE A DAY)
     Route: 065
  2. LATANOPROST. [Concomitant]
     Active Substance: LATANOPROST
     Indication: PRODUCT USED FOR UNKNOWN INDICATION
     Dosage: 0.005 UNK(ONE DROP ONCE A)
     Route: 065
  3. BRIMONIDINE TARTRATE. [Suspect]
     Active Substance: BRIMONIDINE TARTRATE
     Indication: PRODUCT USED FOR UNKNOWN INDICATION
     Dosage: 2 %(ONE DROP IN EAC)
     Route: 065

REACTIONS (3)
  - Asthma [Unknown]
  - Glaucoma [Unknown]
  - Hypertension [Unknown]
